FAERS Safety Report 22023936 (Version 2)
Quarter: 2023Q1

REPORT INFORMATION
  Report Type: Spontaneous
  Country: US (occurrence: US)
  Receive Date: 20230223
  Receipt Date: 20230302
  Transmission Date: 20230417
  Serious: No
  Sender: FDA-Public Use
  Company Number: US-SA-SAC20230222000903

PATIENT
  Sex: Male

DRUGS (1)
  1. DUPIXENT [Suspect]
     Active Substance: DUPILUMAB
     Indication: Psoriasis
     Dosage: 200 MG, QOW
     Route: 058

REACTIONS (3)
  - Product use in unapproved indication [Unknown]
  - Device use issue [Unknown]
  - Product prescribing issue [Unknown]
